FAERS Safety Report 22062517 (Version 2)
Quarter: 2023Q1

REPORT INFORMATION
  Report Type: Spontaneous
  Country: US (occurrence: US)
  Receive Date: 20230305
  Receipt Date: 20230308
  Transmission Date: 20230418
  Serious: No
  Sender: FDA-Public Use
  Company Number: US-JNJFOC-20230247861

PATIENT
  Age: 56 Year
  Sex: Male

DRUGS (1)
  1. DARZALEX [Suspect]
     Active Substance: DARATUMUMAB
     Indication: Product used for unknown indication
     Dosage: 3 VIALS OF 400MG,  2 VIALS OF 100MG ?EXPIRY DATE : FEB-2024.
     Route: 065
     Dates: start: 202211

REACTIONS (3)
  - Adverse event [Unknown]
  - Product dose omission issue [Unknown]
  - Blood pressure increased [Unknown]

NARRATIVE: CASE EVENT DATE: 20230221
